FAERS Safety Report 4281626-5 (Version None)
Quarter: 2004Q1

REPORT INFORMATION
  Report Type: 
  Country: None (occurrence: None)
  Receive Date: 20040105
  Receipt Date: 20021206
  Transmission Date: 20041129
  Serious: Yes (Hospitalization)
  Sender: FDA-Public Use
  Company Number: US010460

PATIENT
  Age: 42 Year
  Sex: Male
  Weight: 86.1834 kg

DRUGS (8)
  1. ACTIQ [Suspect]
     Indication: BACK PAIN
     Dosage: 800 UG QID ORAL
     Route: 048
     Dates: start: 20021001, end: 20021031
  2. MS CONTIN [Concomitant]
  3. EFFEXOR [Concomitant]
  4. AMBIEN [Concomitant]
  5. PROVIGIL [Concomitant]
  6. DILAUDID [Concomitant]
  7. AMITRIPTYLINE [Concomitant]
  8. IBUPROFEN [Concomitant]

REACTIONS (2)
  - DYSPNOEA [None]
  - FATIGUE [None]
